FAERS Safety Report 12320423 (Version 4)
Quarter: 2016Q2

REPORT INFORMATION
  Report Type: Spontaneous
  Country: US (occurrence: US)
  Receive Date: 20160429
  Receipt Date: 20160603
  Transmission Date: 20160815
  Serious: Yes (Other)
  Sender: FDA-Public Use
  Company Number: US-BRISTOL-MYERS SQUIBB COMPANY-BMS-2016-031987

PATIENT
  Sex: Female
  Weight: 44.4 kg

DRUGS (1)
  1. NIVOLUMAB [Suspect]
     Active Substance: NIVOLUMAB
     Indication: NON-SMALL CELL LUNG CANCER
     Dosage: UNK, Q2WK
     Route: 042

REACTIONS (23)
  - Headache [Unknown]
  - Renal function test abnormal [Unknown]
  - Urinary tract infection [Unknown]
  - Personality disorder [Unknown]
  - Dementia [Unknown]
  - Rash [Unknown]
  - Pain in extremity [Unknown]
  - Seizure like phenomena [Unknown]
  - Insomnia [Unknown]
  - Diarrhoea [Not Recovered/Not Resolved]
  - Candida infection [Unknown]
  - Hypersomnia [Unknown]
  - Balance disorder [Unknown]
  - Asthenia [Unknown]
  - Confusional state [Unknown]
  - Blood glucose decreased [Unknown]
  - Tremor [Unknown]
  - Chest pain [Unknown]
  - Feeling abnormal [Unknown]
  - Arthralgia [Unknown]
  - Musculoskeletal stiffness [Unknown]
  - Hypothyroidism [Unknown]
  - Fatigue [Unknown]
